FAERS Safety Report 8561439-6 (Version None)
Quarter: 2012Q3

REPORT INFORMATION
  Report Type: 
  Country: None (occurrence: None)
  Receive Date: 20120802
  Receipt Date: 20120725
  Transmission Date: 20120928
  Serious: Yes (Hospitalization)
  Sender: FDA-Public Use
  Company Number: ME-GLAXOSMITHKLINE-B0813547A

PATIENT
  Sex: Male

DRUGS (3)
  1. MONOPRIL [Concomitant]
  2. DUTASTERIDE/TAMSULOSIN HYDROCHLORIDE [Suspect]
     Indication: PRODUCT USED FOR UNKNOWN INDICATION
     Route: 065
     Dates: start: 20120629, end: 20120630
  3. ANADOL [Concomitant]

REACTIONS (5)
  - DYSSTASIA [None]
  - HYPERHIDROSIS [None]
  - HYPOAESTHESIA [None]
  - GAIT DISTURBANCE [None]
  - GENERAL PHYSICAL HEALTH DETERIORATION [None]
